FAERS Safety Report 4785682-7 (Version None)
Quarter: 2005Q3

REPORT INFORMATION
  Report Type: 
  Country: None (occurrence: None)
  Receive Date: 20050929
  Receipt Date: 20050914
  Transmission Date: 20060218
  Serious: Yes (Death)
  Sender: FDA-Public Use
  Company Number: 2005-US-00069

PATIENT
  Age: 51 Year
  Sex: Male

DRUGS (1)
  1. CLOZAPINE [Suspect]
     Dosage: 450 MG, QD, ORAL
     Route: 048
     Dates: start: 19980901, end: 20050801

REACTIONS (2)
  - ABDOMINAL ABSCESS [None]
  - PROCEDURAL COMPLICATION [None]
